FAERS Safety Report 24141891 (Version 1)
Quarter: 2024Q3

REPORT INFORMATION
  Report Type: Spontaneous
  Country: JP (occurrence: JP)
  Receive Date: 20240726
  Receipt Date: 20240726
  Transmission Date: 20241017
  Serious: Yes (Other)
  Sender: RANBAXY
  Company Number: JP-SUN PHARMACEUTICAL INDUSTRIES LTD-2024RR-459181

PATIENT
  Age: 47 Year
  Sex: Female

DRUGS (6)
  1. ZOLPIDEM [Suspect]
     Active Substance: ZOLPIDEM TARTRATE
     Indication: Seizure
     Dosage: 10 MILLIGRAM, QD
     Route: 065
  2. LEVOCETIRIZINE [Suspect]
     Active Substance: LEVOCETIRIZINE
     Indication: Seizure
     Dosage: 10 MILLIGRAM, QD
     Route: 065
  3. NIFEDIPINE [Suspect]
     Active Substance: NIFEDIPINE
     Indication: Seizure
     Dosage: 80 MILLIGRAM, QD
     Route: 065
  4. NICORANDIL [Suspect]
     Active Substance: NICORANDIL
     Indication: Seizure
     Dosage: 15 MILLIGRAM, QD
     Route: 065
  5. NITROGLYCERIN [Suspect]
     Active Substance: NITROGLYCERIN
     Indication: Seizure
     Dosage: UNK
     Route: 040
  6. ETIZOLAM [Suspect]
     Active Substance: ETIZOLAM
     Indication: Seizure
     Dosage: 0.5 MILLIGRAM, QD
     Route: 065

REACTIONS (7)
  - Therapeutic product effect incomplete [Unknown]
  - Seizure [Unknown]
  - Drug ineffective [Unknown]
  - Condition aggravated [Unknown]
  - Drug resistance [Unknown]
  - Prescribed overdose [Unknown]
  - Rash [Unknown]
